FAERS Safety Report 9706653 (Version 6)
Quarter: 2015Q3

REPORT INFORMATION
  Report Type: Report from Study
  Country: JP (occurrence: JP)
  Receive Date: 20131125
  Receipt Date: 20150713
  Transmission Date: 20151125
  Serious: Yes (Death)
  Sender: FDA-Public Use
  Company Number: JP-ROCHE-1307072

PATIENT
  Age: 70 Year
  Sex: Female
  Weight: 45 kg

DRUGS (10)
  1. LYRICA [Concomitant]
     Active Substance: PREGABALIN
     Route: 048
     Dates: start: 20130801
  2. NIFEDIPINE CR [Concomitant]
     Active Substance: NIFEDIPINE
     Route: 048
     Dates: start: 20120926
  3. BEVACIZUMAB [Suspect]
     Active Substance: BEVACIZUMAB
     Indication: LUNG ADENOCARCINOMA METASTATIC
  4. DIOVAN [Concomitant]
     Active Substance: VALSARTAN
     Route: 048
     Dates: start: 20121219
  5. WARFARIN POTASSIUM [Suspect]
     Active Substance: WARFARIN POTASSIUM
     Indication: VENOUS THROMBOSIS LIMB
     Route: 048
     Dates: start: 20131018, end: 20131022
  6. CARBOPLATIN. [Concomitant]
     Active Substance: CARBOPLATIN
     Indication: LUNG ADENOCARCINOMA METASTATIC
     Dosage: DOSAGE IS UNCERTAIN.
     Route: 041
     Dates: start: 20120229
  7. CYMBALTA [Concomitant]
     Active Substance: DULOXETINE HYDROCHLORIDE
     Route: 048
     Dates: start: 20130919, end: 20130925
  8. BEVACIZUMAB [Suspect]
     Active Substance: BEVACIZUMAB
     Indication: LUNG ADENOCARCINOMA METASTATIC
     Route: 041
     Dates: start: 20120229, end: 20131017
  9. WARFARIN POTASSIUM [Suspect]
     Active Substance: WARFARIN POTASSIUM
     Indication: VENOUS THROMBOSIS LIMB
     Route: 048
     Dates: start: 20131023, end: 20131107
  10. PEMETREXED DISODIUM [Suspect]
     Active Substance: PEMETREXED DISODIUM
     Indication: LUNG ADENOCARCINOMA METASTATIC
     Route: 041
     Dates: start: 20120229, end: 20131017

REACTIONS (4)
  - Multi-organ failure [Fatal]
  - Pulmonary alveolar haemorrhage [Fatal]
  - Venous thrombosis limb [Not Recovered/Not Resolved]
  - Cardiac failure [Fatal]

NARRATIVE: CASE EVENT DATE: 20131018
